FAERS Safety Report 25800998 (Version 2)
Quarter: 2025Q4

REPORT INFORMATION
  Report Type: Spontaneous
  Country: US (occurrence: US)
  Receive Date: 20250915
  Receipt Date: 20251215
  Transmission Date: 20260118
  Serious: No
  Sender: ASTELLAS
  Company Number: US-ASTELLAS-2025-AER-049855

PATIENT
  Sex: Male
  Weight: 61 kg

DRUGS (1)
  1. PADCEV [Suspect]
     Active Substance: ENFORTUMAB VEDOTIN-EJFV
     Indication: Product used for unknown indication
     Dosage: 86MG UNKNOWN FREQUENCY
     Route: 042

REACTIONS (2)
  - Off label use [Unknown]
  - Prescribed overdose [Unknown]
